FAERS Safety Report 5996835-4 (Version None)
Quarter: 2008Q4

REPORT INFORMATION
  Report Type: 
  Country: None (occurrence: None)
  Receive Date: 20081208
  Receipt Date: 20081124
  Transmission Date: 20090506
  Serious: Yes (Hospitalization, Other)
  Sender: FDA-Public Use
  Company Number: WAES0806USA02135

PATIENT
  Age: 33 Year
  Sex: Male
  Weight: 60.782 kg

DRUGS (23)
  1. CAP VORINOSTAT [Suspect]
     Indication: ACUTE MYELOID LEUKAEMIA
     Dosage: 400 MG/DAILY/PO
     Route: 048
     Dates: start: 20080529, end: 20080611
  2. INFUSION (FORM) DECITABINE [Suspect]
     Indication: ACUTE MYELOID LEUKAEMIA
     Dosage: 34 MG/DAILY/IV
     Route: 042
     Dates: start: 20080529, end: 20080602
  3. BENADRYL [Concomitant]
  4. PERCOCET [Concomitant]
  5. PHENEREGAN (PROMETHAZINE HYDROCHL [Concomitant]
  6. PROGASTRIT(ALUMINUM HYDROXIDE) [Concomitant]
  7. PROTONIX [Concomitant]
  8. REGLAN [Concomitant]
  9. ACETAMINOPHEN [Concomitant]
  10. ACYCLOVIR [Concomitant]
  11. CEFEPIME [Concomitant]
  12. DOCUSATE SODIUM [Concomitant]
  13. HYDROCORTISONE [Concomitant]
  14. HYDROMORPHONE HYDROCHLORIDE [Concomitant]
  15. LORAZEPAM [Concomitant]
  16. MAGNESIUM CITRATE [Concomitant]
  17. ONDANSETRON [Concomitant]
  18. PROCHLORPERAZINE [Concomitant]
  19. RANITIDINE [Concomitant]
  20. SENNA [Concomitant]
  21. VANCOMYCIN [Concomitant]
  22. VORICONAZOLE [Concomitant]
  23. ZOLPIDEM TARTRATE [Concomitant]

REACTIONS (40)
  - ABSCESS [None]
  - ACUTE RESPIRATORY DISTRESS SYNDROME [None]
  - ASPIRATION [None]
  - ATELECTASIS [None]
  - BACTERIAL SEPSIS [None]
  - BLOOD URIC ACID DECREASED [None]
  - BRONCHOPULMONARY DISEASE [None]
  - CARDIAC FAILURE [None]
  - CELLULITIS [None]
  - COMPUTERISED TOMOGRAM ABDOMEN ABNORMAL [None]
  - CULTURE THROAT POSITIVE [None]
  - CYST [None]
  - ELECTROCARDIOGRAM ST-T CHANGE [None]
  - ELECTROCARDIOGRAM T WAVE INVERSION [None]
  - ENTEROCOCCAL INFECTION [None]
  - HAEMORRHOIDS [None]
  - HYPERAEMIA [None]
  - KLEBSIELLA BACTERAEMIA [None]
  - KLEBSIELLA SEPSIS [None]
  - LIVER DISORDER [None]
  - LOBAR PNEUMONIA [None]
  - LUNG CONSOLIDATION [None]
  - LUNG INFILTRATION [None]
  - MITRAL VALVE INCOMPETENCE [None]
  - NEUTROPENIA [None]
  - PAIN [None]
  - PANCYTOPENIA [None]
  - PELVIC FLUID COLLECTION [None]
  - PERICARDIAL EFFUSION [None]
  - PLEURAL DISORDER [None]
  - PLEURAL EFFUSION [None]
  - PULMONARY CONGESTION [None]
  - PYREXIA [None]
  - RENAL DISORDER [None]
  - RIGHT VENTRICULAR DYSFUNCTION [None]
  - SINUS DISORDER [None]
  - SKIN LESION [None]
  - SPLEEN DISORDER [None]
  - SUBCUTANEOUS ABSCESS [None]
  - VENTRICULAR HYPOKINESIA [None]
